FAERS Safety Report 9808143 (Version 6)
Quarter: 2015Q3

REPORT INFORMATION
  Report Type: Spontaneous
  Country: JP (occurrence: JP)
  Receive Date: 20140110
  Receipt Date: 20150729
  Transmission Date: 20151125
  Serious: Yes (Hospitalization)
  Sender: FDA-Public Use
  Company Number: JP-JNJFOC-20140103318

PATIENT
  Age: 60 Year
  Sex: Male
  Weight: 51 kg

DRUGS (9)
  1. DUROTEP MT [Suspect]
     Active Substance: FENTANYL
     Indication: PAIN
     Dosage: 25 UG/HR AND 12.5 UG/HR
     Route: 062
     Dates: end: 20131225
  2. TAKEPRON [Concomitant]
     Active Substance: LANSOPRAZOLE
     Indication: GASTRIC ULCER
     Route: 065
  3. SANDOSTATIN [Concomitant]
     Active Substance: OCTREOTIDE ACETATE
     Indication: PANCREATITIS ACUTE
     Route: 058
  4. CALONAL [Concomitant]
     Active Substance: ACETAMINOPHEN
     Indication: PERIPHERAL ARTERIAL OCCLUSIVE DISEASE
     Route: 048
  5. MORPHINE HYDROCHLORIDE [Suspect]
     Active Substance: MORPHINE HYDROCHLORIDE
     Indication: PERIPHERAL ARTERIAL OCCLUSIVE DISEASE
     Route: 048
     Dates: end: 20131225
  6. VANCOMYCIN [Concomitant]
     Active Substance: VANCOMYCIN
     Indication: SEPSIS
     Route: 042
     Dates: start: 20131225, end: 20131225
  7. DUROTEP MT [Suspect]
     Active Substance: FENTANYL
     Indication: PERIPHERAL ARTERIAL OCCLUSIVE DISEASE
     Dosage: 25 UG/HR AND 12.5 UG/HR
     Route: 062
     Dates: end: 20131225
  8. REMINARON [Concomitant]
     Active Substance: GABEXATE MESYLATE
     Indication: PANCREATITIS ACUTE
     Route: 042
  9. TRAMADOL HYDROCHLORIDE. [Concomitant]
     Active Substance: TRAMADOL HYDROCHLORIDE
     Indication: PAIN
     Route: 065

REACTIONS (5)
  - Blood pressure decreased [Recovering/Resolving]
  - Altered state of consciousness [Recovering/Resolving]
  - Drug level increased [Recovering/Resolving]
  - Somnolence [Recovering/Resolving]
  - Pyrexia [Recovered/Resolved]

NARRATIVE: CASE EVENT DATE: 20131224
